FAERS Safety Report 22181920 (Version 2)
Quarter: 2023Q2

REPORT INFORMATION
  Report Type: Report from Study
  Country: FR (occurrence: FR)
  Receive Date: 20230406
  Receipt Date: 20230605
  Transmission Date: 20230722
  Serious: Yes (Hospitalization)
  Sender: FDA-Public Use
  Company Number: FR-SA-SAC20221004000706

PATIENT
  Age: 52 Year
  Sex: Female
  Weight: 61 kg

DRUGS (8)
  1. ISATUXIMAB [Suspect]
     Active Substance: ISATUXIMAB
     Indication: Minimal residual disease
     Dosage: 570 MG
     Route: 042
     Dates: start: 20220315, end: 20220315
  2. ISATUXIMAB [Suspect]
     Active Substance: ISATUXIMAB
     Dosage: 570 MG
     Route: 042
     Dates: start: 20220830, end: 20220830
  3. CARFILZOMIB [Suspect]
     Active Substance: CARFILZOMIB
     Indication: Minimal residual disease
     Dosage: 32.4 MG
     Route: 042
     Dates: start: 20220315, end: 20220315
  4. CARFILZOMIB [Suspect]
     Active Substance: CARFILZOMIB
     Dosage: 90.5 MG
     Route: 042
     Dates: start: 20220830, end: 20220830
  5. LENALIDOMIDE [Suspect]
     Active Substance: LENALIDOMIDE
     Indication: Minimal residual disease
     Dosage: 25 MG
     Route: 048
     Dates: start: 20220315, end: 20220315
  6. LENALIDOMIDE [Suspect]
     Active Substance: LENALIDOMIDE
     Dosage: 15 MG
     Route: 048
     Dates: start: 20220823, end: 20220823
  7. DEXAMETHASONE [Suspect]
     Active Substance: DEXAMETHASONE
     Indication: Minimal residual disease
     Dosage: 40 MG
     Route: 048
     Dates: start: 20220315, end: 20220315
  8. DEXAMETHASONE [Suspect]
     Active Substance: DEXAMETHASONE
     Dosage: 40 MG
     Route: 048
     Dates: start: 20220830, end: 20220830

REACTIONS (2)
  - Renal failure [Recovered/Resolved with Sequelae]
  - Renal failure [Recovered/Resolved]

NARRATIVE: CASE EVENT DATE: 20220321
